FAERS Safety Report 4402234-9 (Version None)
Quarter: 2004Q3

REPORT INFORMATION
  Report Type: 
  Country: None (occurrence: None)
  Receive Date: 20040720
  Receipt Date: 20031110
  Transmission Date: 20050211
  Serious: Yes (Disabling)
  Sender: FDA-Public Use
  Company Number: US-ROCHE-351492

PATIENT
  Sex: Male
  Weight: 3.4 kg

DRUGS (5)
  1. ACCUTANE [Suspect]
     Indication: DRUG USE FOR UNKNOWN INDICATION
     Dates: start: 19980114, end: 20000215
  2. DEPO-PROVERA [Concomitant]
     Indication: CONTRACEPTION
  3. ZOLOFT [Concomitant]
     Dates: end: 20000719
  4. ALBUTEROL [Concomitant]
  5. PRENATAL VITAMINS [Concomitant]

REACTIONS (6)
  - BLADDER DISORDER [None]
  - BREATH SOUNDS ABSENT [None]
  - DRUG EXPOSURE DURING PREGNANCY [None]
  - OSTEOGENESIS IMPERFECTA [None]
  - PREMATURE BABY [None]
  - SHOULDER DYSTOCIA [None]
